FAERS Safety Report 13753041 (Version 1)
Quarter: 2017Q3

REPORT INFORMATION
  Report Type: Spontaneous
  Country: FR (occurrence: FR)
  Receive Date: 20170714
  Receipt Date: 20170714
  Transmission Date: 20171127
  Serious: Yes (Life-Threatening, Hospitalization, Other)
  Sender: FDA-Public Use
  Company Number: FR-BAXTER-2017BAX027291

PATIENT
  Age: 0 Year
  Sex: Female
  Weight: 1.5 kg

DRUGS (24)
  1. ADRIAMYCIN [Suspect]
     Active Substance: DOXORUBICIN HYDROCHLORIDE
     Dosage: FIRST COURSE OF BEACOPP THERAPY(MOTHER DOSE AND ROUTE NOT REPORTED FOR LYMPHOMA)
     Route: 064
     Dates: start: 201405
  2. ONCOVIN [Suspect]
     Active Substance: VINCRISTINE SULFATE
     Dosage: FIRST COURSE OF BEACOPP THERAPY(MOTHER DOSE AND ROUTE NOT REPORTED FOR LYMPHOMA)
     Route: 064
     Dates: start: 201405
  3. MABTHERA [Suspect]
     Active Substance: RITUXIMAB
     Dosage: SECOND COURSE OF R-CHOP THERAPY (MOTHER DOSE AND ROUTE NOT REPORTED FOR LYMPHOMA)
     Route: 064
     Dates: start: 20140424
  4. ADRIAMYCIN [Suspect]
     Active Substance: DOXORUBICIN HYDROCHLORIDE
     Dosage: SECOND COURSE OF R-CHOP THERAPY (MOTHER DOSE AND ROUTE NOT REPORTED FOR LYMPHOMA)
     Route: 064
     Dates: start: 20140424
  5. BLEOMYCIN [Suspect]
     Active Substance: BLEOMYCIN SULFATE
     Indication: FOETAL EXPOSURE DURING PREGNANCY
     Dosage: FIRST COURSE OF BEACOPP THERAPY(MOTHER DOSE AND ROUTE NOT REPORTED FOR LYMPHOMA)
     Route: 064
     Dates: start: 201405
  6. PROCARBAZINE [Suspect]
     Active Substance: PROCARBAZINE
     Indication: FOETAL EXPOSURE DURING PREGNANCY
     Dosage: FIRST COURSE OF BEACOPP THERAPY(MOTHER DOSE AND ROUTE NOT REPORTED FOR LYMPHOMA)
     Route: 064
     Dates: start: 201405
  7. ENDOXAN 1000 MG, POUDRE POUR SOLUTION INJECTABLE [Suspect]
     Active Substance: CYCLOPHOSPHAMIDE
     Indication: FOETAL EXPOSURE DURING PREGNANCY
     Dosage: FIRST COURSE OF R-CHOP (MOTHER DOSE AND ROUTE NOT REPORTED FOR LYMPHOMA)
     Route: 064
     Dates: start: 20140403
  8. CELLTOP 100 MG/5 ML, SOLUTION INJECTABLE POUR PERFUSION [Suspect]
     Active Substance: ETOPOSIDE
     Dosage: SECOND COURSE OF BEACOPP THERAPY (MOTHER DOSE AND ROUTE NOT REPORTED FOR LYMPHOMA)
     Route: 064
     Dates: start: 20140605
  9. ONCOVIN [Suspect]
     Active Substance: VINCRISTINE SULFATE
     Indication: FOETAL EXPOSURE DURING PREGNANCY
     Dosage: FIRST COURSE OF R-CHOP THERAPY(MOTHER DOSE AND ROUTE NOT REPORTED FOR LYMPHOMA)
     Route: 064
     Dates: start: 20140403
  10. BLEOMYCIN [Suspect]
     Active Substance: BLEOMYCIN SULFATE
     Dosage: SECOND COURSE OF BEACOPP THERAPY(MOTHER DOSE AND ROUTE NOT REPORTED FOR LYMPHOMA)
     Route: 064
     Dates: start: 20140605
  11. PROCARBAZINE [Suspect]
     Active Substance: PROCARBAZINE
     Dosage: SECOND COURSE OF BEACOPP THERAPY(MOTHER DOSE AND ROUTE NOT REPORTED FOR LYMPHOMA)
     Route: 064
     Dates: start: 20140605
  12. CELLTOP 100 MG/5 ML, SOLUTION INJECTABLE POUR PERFUSION [Suspect]
     Active Substance: ETOPOSIDE
     Indication: FOETAL EXPOSURE DURING PREGNANCY
     Dosage: FIRST COURSE OF BEACOPP THERAPY (MOTHER DOSE AND ROUTE NOT REPORTED FOR LYMPHOMA)
     Route: 064
     Dates: start: 201405
  13. PREDNISONE. [Suspect]
     Active Substance: PREDNISONE
     Dosage: SECOND COURSE OF BEACOPP THERAPY(MOTHER DOSE AND ROUTE NOT REPORTED FOR LYMPHOMA)
     Route: 064
     Dates: start: 20140605
  14. PREDNISONE. [Suspect]
     Active Substance: PREDNISONE
     Dosage: FIRST COURSE OF BEACOPP THERAPY(MOTHER DOSE AND ROUTE NOT REPORTED FOR LYMPHOMA)
     Route: 064
     Dates: start: 201405
  15. ENDOXAN 1000 MG, POUDRE POUR SOLUTION INJECTABLE [Suspect]
     Active Substance: CYCLOPHOSPHAMIDE
     Dosage: SECOND COURSE OF BEACOPP (MOTHER DOSE AND ROUTE NOT REPORTED FOR LYMPHOMA)
     Route: 064
     Dates: start: 20140605
  16. MABTHERA [Suspect]
     Active Substance: RITUXIMAB
     Indication: FOETAL EXPOSURE DURING PREGNANCY
     Dosage: FIRST COURSE OF R-CHOP THERAPY (MOTHER DOSE AND ROUTE NOT REPORTED FOR LYMPHOMA)
     Route: 064
     Dates: start: 20140403
  17. ONCOVIN [Suspect]
     Active Substance: VINCRISTINE SULFATE
     Dosage: SECOND COURSE OF R-CHOP THERAPY(MOTHER DOSE AND ROUTE NOT REPORTED FOR LYMPHOMA)
     Route: 064
     Dates: start: 20140424
  18. ONCOVIN [Suspect]
     Active Substance: VINCRISTINE SULFATE
     Dosage: SECOND COURSE OF BEACOPP THERAPY(MOTHER DOSE AND ROUTE NOT REPORTED FOR LYMPHOMA)
     Route: 064
     Dates: start: 20140605
  19. ENDOXAN 1000 MG, POUDRE POUR SOLUTION INJECTABLE [Suspect]
     Active Substance: CYCLOPHOSPHAMIDE
     Dosage: FIRST COURSE OF BEACOPP (MOTHER DOSE AND ROUTE NOT REPORTED FOR LYMPHOMA)
     Route: 064
     Dates: start: 201405
  20. PREDNISONE. [Suspect]
     Active Substance: PREDNISONE
     Dosage: SECOND COURSE OF R-CHOP THERAPY(MOTHER DOSE AND ROUTE NOT REPORTED FOR LYMPHOMA)
     Route: 064
     Dates: start: 20140424
  21. ENDOXAN 1000 MG, POUDRE POUR SOLUTION INJECTABLE [Suspect]
     Active Substance: CYCLOPHOSPHAMIDE
     Dosage: SECOND COURSE OF R-CHOP (MOTHER DOSE AND ROUTE NOT REPORTED FOR LYMPHOMA)
     Route: 064
     Dates: start: 20140424
  22. ADRIAMYCIN [Suspect]
     Active Substance: DOXORUBICIN HYDROCHLORIDE
     Indication: FOETAL EXPOSURE DURING PREGNANCY
     Dosage: FIRST COURSE OF R-CHOP THERAPY (MOTHER DOSE AND ROUTE NOT REPORTED FOR LYMPHOMA)
     Route: 064
     Dates: start: 20140403
  23. ADRIAMYCIN [Suspect]
     Active Substance: DOXORUBICIN HYDROCHLORIDE
     Dosage: SECOND COURSE OF BEACOPP THERAPY (MOTHER DOSE AND ROUTE NOT REPORTED FOR LYMPHOMA)
     Route: 064
     Dates: start: 20140605
  24. PREDNISONE. [Suspect]
     Active Substance: PREDNISONE
     Indication: FOETAL EXPOSURE DURING PREGNANCY
     Dosage: FIRST COURSE OF R-CHOP THERAPY(MOTHER DOSE AND ROUTE NOT REPORTED FOR LYMPHOMA)
     Route: 064
     Dates: start: 20140403

REACTIONS (3)
  - Anaemia [Unknown]
  - Foetal exposure during pregnancy [Recovered/Resolved]
  - Premature baby [Recovered/Resolved]

NARRATIVE: CASE EVENT DATE: 20140403
